FAERS Safety Report 9691836 (Version 2)
Quarter: 2014Q1

REPORT INFORMATION
  Report Type: Spontaneous
  Country: US (occurrence: US)
  Receive Date: 20131116
  Receipt Date: 20140110
  Transmission Date: 20141002
  Serious: Yes (Death)
  Sender: FDA-Public Use
  Company Number: US-TEVA-444595USA

PATIENT
  Age: 52 Year
  Sex: Male

DRUGS (1)
  1. ACTIQ [Suspect]
     Indication: BREAKTHROUGH PAIN
     Dates: start: 201303

REACTIONS (3)
  - Neoplasm malignant [Fatal]
  - Drug ineffective [Recovered/Resolved]
  - Adverse event [Recovered/Resolved]
